FAERS Safety Report 11932539 (Version 6)
Quarter: 2016Q1

REPORT INFORMATION
  Report Type: Spontaneous
  Country: NL (occurrence: NL)
  Receive Date: 20160120
  Receipt Date: 20160307
  Transmission Date: 20160526
  Serious: Yes (Death, Hospitalization, Other)
  Sender: FDA-Public Use
  Company Number: NL-009507513-1601NLD006983

PATIENT
  Age: 36 Year
  Sex: Male

DRUGS (11)
  1. OXYCODONE [Suspect]
     Active Substance: OXYCODONE
     Dosage: 20 MG SIX TIMES A DAY
  2. DEXAMETHASONE. [Suspect]
     Active Substance: DEXAMETHASONE
     Dosage: 3 MG, QD
  3. FENTANYL. [Suspect]
     Active Substance: FENTANYL
     Dosage: 50 MICROGRAM
     Route: 062
  4. FENTANYL. [Suspect]
     Active Substance: FENTANYL
     Dosage: 100 MICROGRAM
     Route: 062
  5. CARBOPLATIN. [Suspect]
     Active Substance: CARBOPLATIN
     Dosage: UNK, CYCLICAL
     Route: 042
  6. DEXAMETHASONE. [Suspect]
     Active Substance: DEXAMETHASONE
     Dosage: 10 MG, SINGLE INTRAVENOUS BOLUS
     Route: 040
  7. ETOPOSIDE. [Suspect]
     Active Substance: ETOPOSIDE
     Dosage: DAYS 1-3 (FOUR-WEEKLY CYCLES)
     Route: 042
  8. THERAPY UNSPECIFIED [Suspect]
     Active Substance: UNSPECIFIED INGREDIENT
  9. METOCLOPRAMIDE. [Suspect]
     Active Substance: METOCLOPRAMIDE
  10. DEXAMETHASONE. [Suspect]
     Active Substance: DEXAMETHASONE
     Dosage: 8 MG, BID
  11. DOXAZOSIN [Concomitant]
     Active Substance: DOXAZOSIN\DOXAZOSIN MESYLATE
     Indication: PROPHYLAXIS
     Dosage: 4 MG, QD

REACTIONS (2)
  - Stress cardiomyopathy [Fatal]
  - Pulmonary embolism [Fatal]
